FAERS Safety Report 6730896-X (Version None)
Quarter: 2010Q2

REPORT INFORMATION
  Report Type: 
  Country: None (occurrence: None)
  Receive Date: 20100514
  Receipt Date: 20100503
  Transmission Date: 20101027
  Serious: Yes (Other)
  Sender: FDA-Public Use
  Company Number: 7003723

PATIENT
  Sex: Female

DRUGS (5)
  1. REBIF [Suspect]
     Indication: RELAPSING-REMITTING MULTIPLE SCLEROSIS
     Dosage: 44 MCG, 3 IN 1 WK, SUBCUTANEOUS
     Route: 058
     Dates: start: 20020101
  2. ALPRAZOLAM [Concomitant]
  3. CEBRILIN (PAROXETINE HYDROCHLORIDE) [Concomitant]
  4. CARBOLITHIUM (LITHIUM CARBONATE) [Concomitant]
  5. UNSPECIFIED DRUG FOR HORMONE REPLACEMENT (ALL OTHER THERAPEUTIC PRODUC [Concomitant]

REACTIONS (3)
  - MICTURITION URGENCY [None]
  - POLLAKIURIA [None]
  - URINARY INCONTINENCE [None]
